FAERS Safety Report 8345483-X (Version None)
Quarter: 2012Q2

REPORT INFORMATION
  Report Type: 
  Country: None (occurrence: None)
  Receive Date: 20120508
  Receipt Date: 20120501
  Transmission Date: 20120825
  Serious: Yes (Hospitalization)
  Sender: FDA-Public Use
  Company Number: NL-MEDIMMUNE-MEDI-0013812

PATIENT
  Sex: Male
  Weight: 5.4 kg

DRUGS (5)
  1. MEDICATIONS NOS [Concomitant]
     Dates: start: 20110101
  2. SYNAGIS [Suspect]
     Indication: BRONCHOPULMONARY DYSPLASIA
     Route: 030
     Dates: start: 20110905, end: 20111003
  3. FERRO DRINK [Concomitant]
  4. LACTULOSE [Concomitant]
  5. SYNAGIS [Suspect]
     Route: 030
     Dates: start: 20111030, end: 20111030

REACTIONS (3)
  - ASTHMA [None]
  - OXYGEN SATURATION DECREASED [None]
  - COUGH [None]
